FAERS Safety Report 7877355-9 (Version None)
Quarter: 2011Q4

REPORT INFORMATION
  Report Type: 
  Country: None (occurrence: None)
  Receive Date: 20111031
  Receipt Date: 20111017
  Transmission Date: 20120403
  Serious: No
  Sender: FDA-Public Use
  Company Number: FR-ELI_LILLY_AND_COMPANY-FR201110004239

PATIENT
  Age: 50 Year
  Sex: Male

DRUGS (3)
  1. CYMBALTA [Suspect]
     Indication: DEPRESSION
     Dosage: 60 MG, QD
     Route: 048
     Dates: start: 20101228, end: 20110927
  2. RASILEZ HCT [Concomitant]
     Indication: HYPERTENSION
     Dosage: UNK
     Route: 048
  3. LERCANIDIPINE [Concomitant]
     Indication: HYPERTENSION
     Dosage: UNK
     Route: 048

REACTIONS (2)
  - TRANSAMINASES INCREASED [None]
  - GAMMA-GLUTAMYLTRANSFERASE INCREASED [None]
